FAERS Safety Report 5106421-6 (Version None)
Quarter: 2006Q3

REPORT INFORMATION
  Report Type: 
  Country: None (occurrence: None)
  Receive Date: 20060918
  Receipt Date: 20060816
  Transmission Date: 20061208
  Serious: Yes (Other)
  Sender: FDA-Public Use
  Company Number: 2006SE04489

PATIENT
  Age: 855 Month
  Sex: Female
  Weight: 57 kg

DRUGS (7)
  1. CRESTOR [Suspect]
     Indication: CAROTID ARTERY OCCLUSION
     Route: 048
     Dates: start: 20060602, end: 20060801
  2. FEMIGEL [Concomitant]
  3. DIXARIT [Concomitant]
  4. HYPNOR [Concomitant]
  5. CALTRATE [Concomitant]
  6. PLENISH K [Concomitant]
  7. ELTROXIN [Concomitant]

REACTIONS (1)
  - WEIGHT DECREASED [None]
